FAERS Safety Report 9494240 (Version 2)
Quarter: 2013Q3

REPORT INFORMATION
  Report Type: Report from Study
  Country: CO (occurrence: CO)
  Receive Date: 20130903
  Receipt Date: 20130910
  Transmission Date: 20140515
  Serious: Yes (Life-Threatening, Hospitalization, Other)
  Sender: FDA-Public Use
  Company Number: CO-GENZYME-CERZ-1003151

PATIENT
  Sex: Male

DRUGS (1)
  1. CEREZYME [Suspect]
     Indication: GAUCHER^S DISEASE
     Dosage: 10 400 MG AMPOULES, Q2W
     Route: 042
     Dates: start: 20010415

REACTIONS (1)
  - Brain neoplasm [Not Recovered/Not Resolved]
